FAERS Safety Report 19048292 (Version 1)
Quarter: 2021Q1

REPORT INFORMATION
  Report Type: Spontaneous
  Country: US (occurrence: US)
  Receive Date: 20210324
  Receipt Date: 20210324
  Transmission Date: 20210420
  Serious: No
  Sender: FDA-Public Use
  Company Number: US-IPSEN BIOPHARMACEUTICALS, INC.-2021-07108

PATIENT
  Age: 70 Year
  Sex: Male

DRUGS (1)
  1. DYSPORT [Suspect]
     Active Substance: ABOBOTULINUMTOXINA
     Indication: MUSCLE SPASTICITY
     Dosage: 2000 INTERNATIONAL  UNITS
     Route: 065
     Dates: start: 20210203, end: 20210203

REACTIONS (4)
  - Anal incontinence [Not Recovered/Not Resolved]
  - Product preparation error [Unknown]
  - Urinary incontinence [Not Recovered/Not Resolved]
  - Prescribed overdose [Unknown]

NARRATIVE: CASE EVENT DATE: 202102
